FAERS Safety Report 20408613 (Version 1)
Quarter: 2022Q1

REPORT INFORMATION
  Report Type: Spontaneous
  Country: FR (occurrence: FR)
  Receive Date: 20220201
  Receipt Date: 20220201
  Transmission Date: 20220423
  Serious: Yes (Hospitalization)
  Sender: FDA-Public Use
  Company Number: None

PATIENT
  Age: 41 Year
  Sex: Male

DRUGS (2)
  1. ETOPOSIDE [Suspect]
     Active Substance: ETOPOSIDE
     Indication: Rectal adenocarcinoma
     Dosage: 200 MG, ETOPOSIDE TEVA
     Route: 042
     Dates: start: 20211217, end: 20211217
  2. CISPLATIN [Suspect]
     Active Substance: CISPLATIN
     Indication: Rectal adenocarcinoma
     Dosage: 200 MG; CISPLATIN ACCORD 1 MG/ML, CONCENTRATE FOR SOLUTION FOR INFUSION
     Route: 042
     Dates: start: 20211217, end: 20211217

REACTIONS (1)
  - Atrial fibrillation [Recovering/Resolving]

NARRATIVE: CASE EVENT DATE: 20211218
